FAERS Safety Report 7722674-X (Version None)
Quarter: 2011Q3

REPORT INFORMATION
  Report Type: 
  Country: None (occurrence: None)
  Receive Date: 20110831
  Receipt Date: 20110822
  Transmission Date: 20111222
  Serious: Yes (Hospitalization)
  Sender: FDA-Public Use
  Company Number: US-ASTRAZENECA-2011SE50134

PATIENT
  Age: 57 Year
  Sex: Male

DRUGS (8)
  1. ALBUTEROL SULFATE [Concomitant]
     Dosage: 1.25M PRN G/3ML
     Route: 055
  2. MORPHINE SULFATE [Concomitant]
     Route: 048
  3. VANDETANIB [Suspect]
     Indication: THYROID CANCER
     Route: 048
     Dates: start: 20110805
  4. POTASSIUM CHLORIDE [Concomitant]
     Route: 048
  5. INDOMETHACIN [Concomitant]
     Route: 048
  6. MORPHINE SULFATE [Concomitant]
     Route: 048
  7. HYDROCODONE BITARTRATE AND ACETAMINOPHEN [Concomitant]
     Dosage: 10-500 MG PRN
     Route: 048
  8. LOMOTIL [Concomitant]
     Dosage: 2.5-0.25 MG PRN
     Route: 048

REACTIONS (1)
  - PNEUMONIA [None]
